FAERS Safety Report 10391107 (Version 4)
Quarter: 2014Q4

REPORT INFORMATION
  Report Type: Spontaneous
  Country: US (occurrence: US)
  Receive Date: 20140818
  Receipt Date: 20141117
  Transmission Date: 20150528
  Serious: Yes (Death, Other)
  Sender: FDA-Public Use
  Company Number: US-GLAXOSMITHKLINE-A1085354A

PATIENT
  Weight: 51.7 kg

DRUGS (2)
  1. INLYTA [Suspect]
     Active Substance: AXITINIB
     Indication: RENAL CANCER
     Dosage: 5 MG TABLET TWICE PER DAY
     Route: 048
     Dates: start: 20121219
  2. VOTRIENT [Suspect]
     Active Substance: PAZOPANIB HYDROCHLORIDE
     Indication: RENAL CANCER
     Dosage: (4) 200 MG TABLETS AT 800 MG DAILY
     Route: 065
     Dates: start: 20121212

REACTIONS (1)
  - Renal cell carcinoma [Fatal]
